FAERS Safety Report 4853260-7 (Version None)
Quarter: 2005Q4

REPORT INFORMATION
  Report Type: 
  Country: None (occurrence: None)
  Receive Date: 20051212
  Receipt Date: 20051128
  Transmission Date: 20060501
  Serious: Yes (Life-Threatening, Hospitalization)
  Sender: FDA-Public Use
  Company Number: 2005159313

PATIENT
  Age: 82 Year
  Sex: Female
  Weight: 57.6 kg

DRUGS (10)
  1. LIPITOR [Suspect]
     Indication: ILL-DEFINED DISORDER
     Dosage: 20 MG (1 D), ORAL
     Route: 048
     Dates: start: 20051007, end: 20051111
  2. COVERSYL (PERINDOPRIL) [Concomitant]
  3. FLUITRAN (TRICHLORMETHIAZIDE) [Concomitant]
  4. SIGMART (NICORANDIL) [Concomitant]
  5. ALLOPURINOL [Concomitant]
  6. DEPAS (ETIZOLAM) [Concomitant]
  7. PRAVASTATIN [Concomitant]
  8. LASIX [Concomitant]
  9. VALSARTAN [Concomitant]
  10. AMOBRAN (ZOPICLONE) [Concomitant]

REACTIONS (4)
  - DEHYDRATION [None]
  - DRUG INEFFECTIVE [None]
  - RENAL FAILURE ACUTE [None]
  - SICK SINUS SYNDROME [None]
